FAERS Safety Report 16367470 (Version 1)
Quarter: 2019Q2

REPORT INFORMATION
  Report Type: Spontaneous
  Country: US (occurrence: US)
  Receive Date: 20190529
  Receipt Date: 20190529
  Transmission Date: 20190711
  Serious: No
  Sender: FDA-Public Use
  Company Number: US-OTSUKA-2018_035036

PATIENT
  Age: 13 Year

DRUGS (1)
  1. SAMSCA [Suspect]
     Active Substance: TOLVAPTAN
     Indication: PRODUCT USED FOR UNKNOWN INDICATION
     Dosage: UNK
     Route: 065

REACTIONS (1)
  - Product administered to patient of inappropriate age [Unknown]
